FAERS Safety Report 6828329-8 (Version None)
Quarter: 2010Q3

REPORT INFORMATION
  Report Type: 
  Country: None (occurrence: None)
  Receive Date: 20100709
  Receipt Date: 20070205
  Transmission Date: 20110219
  Serious: No
  Sender: FDA-Public Use
  Company Number: US-PFIZER INC-2007010324

PATIENT
  Sex: Female
  Weight: 78.93 kg

DRUGS (6)
  1. CHANTIX [Suspect]
     Indication: SMOKING CESSATION THERAPY
     Dates: start: 20070129
  2. RISPERDAL [Concomitant]
  3. LEXAPRO [Concomitant]
  4. MOMETASONE FUROATE [Concomitant]
  5. ALBUTEROL [Concomitant]
     Route: 055
  6. ADVAIR DISKUS 100/50 [Concomitant]

REACTIONS (1)
  - NAUSEA [None]
